FAERS Safety Report 7072770 (Version 44)
Quarter: 2014Q1

REPORT INFORMATION
  Report Type: Report from Study
  Country: CA (occurrence: CA)
  Receive Date: 20090805
  Receipt Date: 20140219
  Transmission Date: 20141002
  Serious: Yes (Death, Hospitalization, Other)
  Sender: FDA-Public Use
  Company Number: PHHY2009CA30906

PATIENT
  Age: 76 Year
  Sex: Female

DRUGS (12)
  1. SANDOSTATIN LAR [Suspect]
     Indication: SMALL INTESTINE CARCINOMA
     Dosage: 30 MG, TIW
     Route: 030
     Dates: start: 20090526
  2. SANDOSTATIN LAR [Suspect]
     Dosage: 30 MG, QMO
     Route: 030
  3. SANDOSTATIN LAR [Suspect]
     Dosage: 30 MG, TIW
     Route: 030
  4. SANDOSTATIN LAR [Suspect]
     Dosage: 30 MG, QMO
     Route: 030
  5. SANDOSTATIN LAR [Suspect]
     Dosage: 30 MG, EVERY THREE WEEKS
     Route: 030
  6. SANDOSTATIN LAR [Suspect]
     Dosage: 30 MG, EVERY FOUR WEEKS
     Route: 030
  7. SANDOSTATIN LAR [Suspect]
     Dosage: 30 MG, EVERY 3 WEEKS
     Route: 030
     Dates: end: 20131217
  8. SANDOSTATIN (OCTREOTIDE ACETATE) [Suspect]
     Indication: SMALL INTESTINE CARCINOMA
     Dosage: 100 UG, TID
     Route: 058
  9. CAPECITABINE [Concomitant]
     Dosage: UNK UKN, UNK
  10. XELODA [Concomitant]
     Dosage: UNK UKN, UNK
  11. ENEMA [Concomitant]
     Dosage: UNK UKN, UNK
  12. MORPHINE SULFATE [Concomitant]
     Dosage: 5 MG, 1 OR 2 TABS

REACTIONS (48)
  - Death [Fatal]
  - Abdominal adhesions [Unknown]
  - Blood pressure increased [Unknown]
  - Anuria [Recovered/Resolved]
  - Fall [Unknown]
  - Humerus fracture [Unknown]
  - Herpes zoster [Unknown]
  - Hypotension [Unknown]
  - Neuralgia [Unknown]
  - Pain [Not Recovered/Not Resolved]
  - Lower respiratory tract infection [Unknown]
  - Dyspnoea [Not Recovered/Not Resolved]
  - Thrombocytopenia [Unknown]
  - Nausea [Unknown]
  - Diarrhoea [Unknown]
  - Pain in extremity [Unknown]
  - Ocular hyperaemia [Unknown]
  - Arthralgia [Unknown]
  - Increased tendency to bruise [Unknown]
  - Abnormal behaviour [Unknown]
  - Cough [Not Recovered/Not Resolved]
  - Back pain [Not Recovered/Not Resolved]
  - Flank pain [Recovered/Resolved]
  - Contusion [Unknown]
  - Vision blurred [Unknown]
  - Blood test abnormal [Unknown]
  - Flushing [Unknown]
  - General physical health deterioration [Unknown]
  - Weight decreased [Unknown]
  - Wheezing [Unknown]
  - Throat tightness [Unknown]
  - Gastrointestinal motility disorder [Recovered/Resolved]
  - Respiratory rate increased [Unknown]
  - Abdominal pain [Recovered/Resolved]
  - Abdominal distension [Unknown]
  - Flatulence [Unknown]
  - Abdominal pain upper [Unknown]
  - Dizziness [Unknown]
  - Asthenia [Unknown]
  - Fatigue [Unknown]
  - Malaise [Unknown]
  - Vomiting [Recovered/Resolved]
  - Heart rate irregular [Unknown]
  - Constipation [Unknown]
  - Heart rate increased [Unknown]
  - Yellow skin [Unknown]
  - Dehydration [Unknown]
  - Urticaria [Unknown]
